FAERS Safety Report 5730015-2 (Version None)
Quarter: 2008Q2

REPORT INFORMATION
  Report Type: 
  Country: None (occurrence: None)
  Receive Date: 20080507
  Receipt Date: 20080424
  Transmission Date: 20081010
  Serious: Yes (Hospitalization)
  Sender: FDA-Public Use
  Company Number: US-JNJFOC-20080400030

PATIENT
  Sex: Female
  Weight: 104.33 kg

DRUGS (4)
  1. DURAGESIC-100 [Suspect]
     Route: 062
  2. DURAGESIC-100 [Suspect]
     Route: 062
  3. DURAGESIC-100 [Suspect]
     Route: 062
  4. DURAGESIC-100 [Suspect]
     Indication: ARTHRITIS
     Route: 062

REACTIONS (11)
  - ADVERSE DRUG REACTION [None]
  - CARDIAC ABLATION [None]
  - CARDIAC OPERATION [None]
  - CARDIAC PACEMAKER INSERTION [None]
  - DIZZINESS [None]
  - DRUG DEPENDENCE [None]
  - ELECTROCARDIOGRAM ABNORMAL [None]
  - FEELING ABNORMAL [None]
  - HEART RATE IRREGULAR [None]
  - HYPERSOMNIA [None]
  - VISION BLURRED [None]
